FAERS Safety Report 5708428-4 (Version None)
Quarter: 2008Q2

REPORT INFORMATION
  Report Type: 
  Country: None (occurrence: None)
  Receive Date: 20080417
  Receipt Date: 20080407
  Transmission Date: 20081010
  Serious: Yes (Life-Threatening, Hospitalization)
  Sender: FDA-Public Use
  Company Number: DE-BAXTER-2008BH000964

PATIENT
  Age: 79 Year
  Sex: Male
  Weight: 76 kg

DRUGS (8)
  1. EXTRANEAL [Suspect]
     Indication: RENAL FAILURE
     Route: 033
     Dates: start: 20060310, end: 20080128
  2. PHYSIONEAL 40 VIAFLEX [Suspect]
     Indication: RENAL FAILURE
     Route: 033
     Dates: start: 20051107, end: 20080128
  3. PHYSIONEAL 40 VIAFLEX [Suspect]
     Route: 033
     Dates: start: 20051121, end: 20060309
  4. PHYSIONEAL 40 VIAFLEX [Suspect]
     Route: 033
     Dates: start: 20060310, end: 20080128
  5. FUROSEMIDE [Concomitant]
     Indication: POLYURIA
     Route: 048
     Dates: start: 20080116, end: 20080123
  6. FUROSEMIDE [Concomitant]
     Route: 048
     Dates: start: 20060131, end: 20080116
  7. ACETYLSALICYLIC ACID SRT [Concomitant]
     Route: 048
     Dates: start: 20051212
  8. FOSRENOL [Concomitant]
     Route: 048
     Dates: start: 20071218, end: 20080123

REACTIONS (3)
  - MECHANICAL ILEUS [None]
  - PERITONITIS [None]
  - VOMITING [None]
